FAERS Safety Report 16023269 (Version 1)
Quarter: 2019Q1

REPORT INFORMATION
  Report Type: Report from Study
  Country: UY (occurrence: UY)
  Receive Date: 20190301
  Receipt Date: 20190301
  Transmission Date: 20190418
  Serious: Yes (Other)
  Sender: FDA-Public Use
  Company Number: UY-SA-2018SA325763

PATIENT
  Age: 78 Year
  Sex: Male

DRUGS (12)
  1. ELDEREND [Concomitant]
     Dosage: 1 DF, QD (WITH LUNCH)
  2. INSULIN GLULISINE [Suspect]
     Active Substance: INSULIN GLULISINE
     Indication: LATENT AUTOIMMUNE DIABETES IN ADULTS
     Dosage: 2-3-2-2, TID (AT BREAKFAST, LUNCH, SNACK AND DINNER)
     Route: 058
     Dates: start: 201111
  3. ROSULIP [Concomitant]
     Active Substance: ROSUVASTATIN CALCIUM
     Dosage: 2 DF, QD (WITH DINNER)
  4. SOMIT [Concomitant]
     Dosage: 0.5 DF, UNK
  5. PROSTAM [Concomitant]
     Dosage: 1 DF, QD (WITH BTREAKFAST)
  6. CARDIODIL [Concomitant]
     Dosage: 0.5 DF, BID (WITH BREAKFAST AND DINNER)
  7. CARVEDILOL. [Concomitant]
     Active Substance: CARVEDILOL
     Dosage: 1 DF, QD (WITH BREAKFAST)
  8. DIAFORMIN [Concomitant]
     Active Substance: METFORMIN HYDROCHLORIDE
     Dosage: 1 DF, QD (WITH LUNCH)
  9. MECLIZINE [Concomitant]
     Active Substance: MECLIZINE HYDROCHLORIDE
     Dosage: 2 DF, QD (WITH BREAKFAST AND DINNER)
  10. CARDIOASPIRINA [Concomitant]
     Active Substance: ASPIRIN
     Dosage: 1 DF, QD (WITH LUNCH)
  11. INSULIN GLARGINE [Suspect]
     Active Substance: INSULIN GLARGINE
     Indication: LATENT AUTOIMMUNE DIABETES IN ADULTS
     Dosage: 32 IU, QD
     Route: 058
     Dates: start: 20111101
  12. METFORMIN [Concomitant]
     Active Substance: METFORMIN HYDROCHLORIDE
     Indication: LATENT AUTOIMMUNE DIABETES IN ADULTS
     Dosage: 1 AT LUNCH AND ? AT DINNER
     Route: 065

REACTIONS (6)
  - Haemoglobinuria [Unknown]
  - Back pain [Recovered/Resolved]
  - Constipation [Recovered/Resolved]
  - Balance disorder [Unknown]
  - Haemoglobin decreased [Unknown]
  - Vertigo [Unknown]

NARRATIVE: CASE EVENT DATE: 201808
